FAERS Safety Report 7587987-3 (Version None)
Quarter: 2011Q3

REPORT INFORMATION
  Report Type: 
  Country: None (occurrence: None)
  Receive Date: 20110705
  Receipt Date: 20110627
  Transmission Date: 20111222
  Serious: No
  Sender: FDA-Public Use
  Company Number: US-PFIZER INC-2011143131

PATIENT
  Sex: Female
  Weight: 55.329 kg

DRUGS (4)
  1. ZYPREXA [Concomitant]
     Indication: DEPRESSION
  2. PRISTIQ [Suspect]
     Indication: ANXIETY
     Dosage: 50 MG, DAILY
     Route: 048
     Dates: start: 20110601
  3. ZYPREXA [Concomitant]
     Indication: ANXIETY
     Dosage: 20 MG, DAILY
     Route: 048
  4. PRISTIQ [Suspect]
     Indication: DEPRESSION

REACTIONS (3)
  - WRONG TECHNIQUE IN DRUG USAGE PROCESS [None]
  - BURNING SENSATION [None]
  - HEAD DISCOMFORT [None]
